FAERS Safety Report 5824651-2 (Version None)
Quarter: 2008Q3

REPORT INFORMATION
  Report Type: 
  Country: None (occurrence: None)
  Receive Date: 20080721
  Receipt Date: 20080711
  Transmission Date: 20090109
  Serious: Yes (Death)
  Sender: FDA-Public Use
  Company Number: CERZ-1000285

PATIENT
  Age: 53 Year
  Sex: Male
  Weight: 62 kg

DRUGS (1)
  1. CEREZYME [Suspect]
     Indication: GAUCHER'S DISEASE
     Dosage: 15 U/KG, Q2W, INTRAVENOUS
     Route: 042
     Dates: start: 19990601, end: 20080416

REACTIONS (4)
  - DEPRESSION [None]
  - DISEASE COMPLICATION [None]
  - DISEASE PROGRESSION [None]
  - GAUCHER'S DISEASE [None]
